FAERS Safety Report 9513110 (Version 1)
Quarter: 2013Q1

REPORT INFORMATION
  Report Type: Spontaneous
  Country: US (occurrence: None)
  Receive Date: 20130305
  Receipt Date: 20130305
  Transmission Date: 20140127
  Serious: Yes (Other)
  Sender: FDA-Public Use
  Company Number: 163-21880-12101578

PATIENT
  Age: 46 Year
  Sex: Female
  Weight: 56.02 kg

DRUGS (6)
  1. REVLIMID (LENALIDOMIDE) (CAPSULES) [Suspect]
     Indication: PLASMA CELL MYELOMA
     Dosage: 21 IN 21 D
     Route: 048
     Dates: start: 20091120
  2. ZOLINZA [Concomitant]
  3. DEXAMETHASONE [Concomitant]
  4. CLARITHROMYCIN [Concomitant]
  5. NEUPOGEN [Concomitant]
  6. VELCADE [Concomitant]

REACTIONS (3)
  - Mood altered [None]
  - Urinary tract infection [None]
  - Full blood count decreased [None]
